FAERS Safety Report 9297581 (Version 1)
Quarter: 2013Q2

REPORT INFORMATION
  Report Type: Spontaneous
  Country: US (occurrence: US)
  Receive Date: 20130520
  Receipt Date: 20130520
  Transmission Date: 20140414
  Serious: No
  Sender: FDA-Public Use
  Company Number: US-PFIZER INC-2013154301

PATIENT
  Age: 77 Year
  Sex: Female
  Weight: 61.22 kg

DRUGS (4)
  1. LYRICA [Suspect]
     Indication: POST HERPETIC NEURALGIA
     Dosage: 50 MG, 3X/DAY
     Dates: start: 20130429, end: 201305
  2. LYRICA [Suspect]
     Dosage: 50 MG, 2X/DAY
     Dates: start: 201305
  3. GABAPENTIN [Suspect]
     Indication: POST HERPETIC NEURALGIA
     Dosage: 100 MG, 4X/DAY
     Dates: start: 20130402, end: 201304
  4. GABAPENTIN [Suspect]
     Dosage: 100 MG, 6X/DAY
     Dates: start: 201304, end: 20130429

REACTIONS (3)
  - Musculoskeletal stiffness [Unknown]
  - Gait disturbance [Unknown]
  - Drug ineffective [Unknown]
